FAERS Safety Report 16685091 (Version 1)
Quarter: 2019Q3

REPORT INFORMATION
  Report Type: Report from Study
  Country: US (occurrence: US)
  Receive Date: 20190808
  Receipt Date: 20190808
  Transmission Date: 20191004
  Serious: Yes (Other)
  Sender: FDA-Public Use
  Company Number: US-ACTELION-A-US2019-193992

PATIENT
  Age: 55 Year
  Sex: Male

DRUGS (13)
  1. LOSARTAN. [Concomitant]
     Active Substance: LOSARTAN
  2. SILDENAFIL. [Concomitant]
     Active Substance: SILDENAFIL
  3. ALBUTEROL HFA [Concomitant]
     Active Substance: ALBUTEROL SULFATE
  4. TORSEMIDE. [Concomitant]
     Active Substance: TORSEMIDE
  5. BENZONATATE. [Concomitant]
     Active Substance: BENZONATATE
  6. OPSUMIT [Suspect]
     Active Substance: MACITENTAN
     Indication: PULMONARY HYPERTENSION
     Dosage: 10 MG, QD
     Route: 048
     Dates: start: 201905
  7. MULTIVITAMIN [Concomitant]
     Active Substance: VITAMINS
  8. COREG [Concomitant]
     Active Substance: CARVEDILOL
  9. ADVAIR HFA [Concomitant]
     Active Substance: FLUTICASONE PROPIONATE\SALMETEROL XINAFOATE
  10. ASPIRIN. [Concomitant]
     Active Substance: ASPIRIN
  11. EPIPEN [Concomitant]
     Active Substance: EPINEPHRINE
  12. ZOCOR [Concomitant]
     Active Substance: SIMVASTATIN
  13. GABAPENTIN. [Concomitant]
     Active Substance: GABAPENTIN

REACTIONS (5)
  - Vomiting [Unknown]
  - Gastroenteritis viral [Unknown]
  - Abdominal pain [Unknown]
  - Nausea [Unknown]
  - Diarrhoea [Unknown]

NARRATIVE: CASE EVENT DATE: 20190728
